FAERS Safety Report 8963673 (Version 2)
Quarter: 2012Q4

REPORT INFORMATION
  Report Type: 
  Country: US (occurrence: US)
  Receive Date: 20121214
  Receipt Date: 20121221
  Transmission Date: 20130627
  Serious: Yes (Hospitalization, Other)
  Sender: FDA-Public Use
  Company Number: US-BAYER-2012-130227

PATIENT
  Age: 22 Year
  Sex: Female
  Weight: 131.52 kg

DRUGS (16)
  1. YAZ [Suspect]
  2. OCELLA [Suspect]
     Dosage: UNK
     Dates: start: 200501, end: 200901
  3. OCELLA [Suspect]
     Dosage: UNK
     Dates: start: 200501, end: 200902
  4. YASMIN [Suspect]
     Dosage: UNK
     Dates: start: 200501, end: 2009
  5. YASMIN [Suspect]
     Dosage: UNK
     Dates: start: 200501, end: 200902
  6. DECADRON [Concomitant]
     Dosage: 4 mg, UNK
  7. IMMUNOGLOBULIN [Concomitant]
     Route: 042
  8. DEXAMETHASONE [Concomitant]
  9. PRILOSEC [Concomitant]
  10. BUDEPRION [Concomitant]
     Indication: DEPRESSION
     Dosage: 150 mg, UNK
     Dates: start: 2005
  11. WELLBUTRIN [Concomitant]
  12. OMEPRAZOLE [Concomitant]
     Indication: ACID REFLUX (OESOPHAGEAL)
     Dosage: 20 mg, UNK
     Dates: start: 2004
  13. DICYCLOMINE [Concomitant]
     Indication: IRRITABLE BOWEL SYNDROME
     Dosage: 10 mg, UNK
     Dates: start: 2006
  14. TYLENOL [Concomitant]
     Indication: HEADACHE
     Dosage: 1000 mg, PRN
  15. TYLENOL [Concomitant]
     Indication: PREMEDICATION
  16. BENADRYL [Concomitant]
     Indication: PREMEDICATION
     Dosage: 25 mg, PRN

REACTIONS (12)
  - Pulmonary embolism [None]
  - Pulmonary infarction [None]
  - Deep vein thrombosis [None]
  - Deep vein thrombosis [None]
  - Deep vein thrombosis [None]
  - Thrombosis [None]
  - Pain [None]
  - Injury [None]
  - General physical health deterioration [None]
  - Anxiety [None]
  - Emotional distress [None]
  - Pain [None]
